FAERS Safety Report 4998106-1 (Version None)
Quarter: 2006Q2

REPORT INFORMATION
  Report Type: 
  Country: None (occurrence: None)
  Receive Date: 20060508
  Receipt Date: 20060505
  Transmission Date: 20061013
  Serious: Yes (Other)
  Sender: FDA-Public Use
  Company Number: 220984

PATIENT
  Age: 54 Year
  Sex: Male

DRUGS (1)
  1. RAPTIVA [Suspect]
     Indication: PSORIASIS
     Dates: start: 20040101

REACTIONS (1)
  - B-CELL SMALL LYMPHOCYTIC LYMPHOMA [None]
